FAERS Safety Report 16457805 (Version 1)
Quarter: 2019Q2

REPORT INFORMATION
  Report Type: Report from Study
  Country: PK (occurrence: PK)
  Receive Date: 20190620
  Receipt Date: 20190620
  Transmission Date: 20190711
  Serious: Yes (Death)
  Sender: FDA-Public Use
  Company Number: PHHY2017PK205133

PATIENT
  Age: 59 Year
  Sex: Female
  Weight: 52 kg

DRUGS (1)
  1. TASIGNA [Suspect]
     Active Substance: NILOTINIB
     Indication: CHRONIC MYELOID LEUKAEMIA
     Dosage: UNK, BID (2 CAPS IN MORNING 1 IN EVENING
     Route: 048
     Dates: start: 20150114, end: 20150429

REACTIONS (1)
  - Death [Fatal]

NARRATIVE: CASE EVENT DATE: 20150506
